FAERS Safety Report 13679466 (Version 5)
Quarter: 2020Q4

REPORT INFORMATION
  Report Type: Spontaneous
  Country: US (occurrence: US)
  Receive Date: 20170622
  Receipt Date: 20201027
  Transmission Date: 20210113
  Serious: Yes (Other)
  Sender: FDA-Public Use
  Company Number: US-ASTRAZENECA-2017SE63725

PATIENT
  Age: 16460 Day
  Sex: Male
  Weight: 113.4 kg

DRUGS (95)
  1. NEXIUM [Suspect]
     Active Substance: ESOMEPRAZOLE MAGNESIUM
     Indication: GASTRIC PH DECREASED
     Dosage: 40.0MG UNKNOWN
     Route: 048
     Dates: start: 2000, end: 2016
  2. TRAMADOL. [Concomitant]
     Active Substance: TRAMADOL
     Indication: SPINAL OPERATION
     Route: 048
     Dates: start: 20151102
  3. CELEBREX [Concomitant]
     Active Substance: CELECOXIB
     Indication: BACK PAIN
     Route: 048
     Dates: start: 20141002
  4. DIOVAN [Concomitant]
     Active Substance: VALSARTAN
     Indication: BLOOD PRESSURE ABNORMAL
  5. PRISTIQ EXTENDED-RELEASE [Concomitant]
     Active Substance: DESVENLAFAXINE SUCCINATE
  6. AMLODIPINE [Concomitant]
     Active Substance: AMLODIPINE BESYLATE
     Route: 048
     Dates: start: 20160321
  7. GLIPIZIDE. [Concomitant]
     Active Substance: GLIPIZIDE
     Route: 048
  8. BETADINE [Concomitant]
     Active Substance: POVIDONE-IODINE
     Route: 048
  9. CLONOPIN [Concomitant]
     Active Substance: CLONAZEPAM
     Route: 048
  10. DICLOFENAC POTASSIUM. [Concomitant]
     Active Substance: DICLOFENAC POTASSIUM
     Route: 048
  11. NEXIUM [Suspect]
     Active Substance: ESOMEPRAZOLE MAGNESIUM
     Indication: GASTROOESOPHAGEAL REFLUX DISEASE
     Dosage: 40.0MG UNKNOWN
     Route: 048
     Dates: start: 2000, end: 2016
  12. VIIBRYD [Concomitant]
     Active Substance: VILAZODONE HYDROCHLORIDE
     Route: 048
     Dates: start: 20150615
  13. TUMS [Concomitant]
     Active Substance: CALCIUM CARBONATE
     Indication: DYSPEPSIA
  14. LASARTEN [Concomitant]
     Indication: BLOOD PRESSURE ABNORMAL
  15. LOTEMAX [Concomitant]
     Active Substance: LOTEPREDNOL ETABONATE
     Route: 048
     Dates: start: 20160321
  16. TUSSIONEX PENNKINETIC [Concomitant]
     Active Substance: CHLORPHENIRAMINE\HYDROCODONE
     Route: 048
     Dates: start: 20160321
  17. PREDNISONE. [Concomitant]
     Active Substance: PREDNISONE
     Route: 048
  18. CANDESARTAN. [Concomitant]
     Active Substance: CANDESARTAN
     Route: 048
  19. TAMSULOSIN [Concomitant]
     Active Substance: TAMSULOSIN
     Route: 048
  20. CERON [Concomitant]
     Active Substance: CHLORPHENIRAMINE MALEATE\PHENYLEPHRINE HYDROCHLORIDE
     Route: 048
  21. NEXIUM [Suspect]
     Active Substance: ESOMEPRAZOLE MAGNESIUM
     Indication: GASTRIC PH DECREASED
     Dosage: 40.0MG UNKNOWN
     Route: 048
     Dates: start: 2006, end: 2016
  22. NEXIUM [Suspect]
     Active Substance: ESOMEPRAZOLE MAGNESIUM
     Indication: GASTROOESOPHAGEAL REFLUX DISEASE
     Dosage: GENERIC40.0MG UNKNOWN
     Route: 048
  23. OMEGA 3 [Concomitant]
     Active Substance: OMEGA-3 FATTY ACIDS
     Indication: BLOOD CHOLESTEROL
     Dosage: 160-12.5 MG
     Route: 048
  24. CYCLOBENZAPRINE. [Concomitant]
     Active Substance: CYCLOBENZAPRINE
     Dosage: 160-12.5 MG
     Route: 048
  25. CEPHALEXIN. [Concomitant]
     Active Substance: CEPHALEXIN
     Route: 048
     Dates: start: 20160321
  26. TRIAMCINOLONE [Concomitant]
     Active Substance: TRIAMCINOLONE
     Route: 048
     Dates: start: 20160321
  27. MOBIC [Concomitant]
     Active Substance: MELOXICAM
     Route: 048
     Dates: start: 20160321
  28. OMNARIS [Concomitant]
     Active Substance: CICLESONIDE
     Route: 048
     Dates: start: 20160321
  29. DOXYCYCLINE. [Concomitant]
     Active Substance: DOXYCYCLINE
     Route: 048
  30. SINGULAIR [Concomitant]
     Active Substance: MONTELUKAST SODIUM
     Route: 048
  31. PROAIR HFA [Concomitant]
     Active Substance: ALBUTEROL SULFATE
     Route: 048
  32. ABEDITEROL. [Concomitant]
     Active Substance: ABEDITEROL
     Route: 048
  33. PROMETHAZINE [Concomitant]
     Active Substance: PROMETHAZINE HYDROCHLORIDE
     Route: 065
  34. VITAMIN B12 [Concomitant]
     Active Substance: CYANOCOBALAMIN
     Indication: VITAMIN B12 DEFICIENCY
  35. TRAMADOL HYDROCHLORIDE. [Concomitant]
     Active Substance: TRAMADOL HYDROCHLORIDE
  36. NEXIUM [Suspect]
     Active Substance: ESOMEPRAZOLE MAGNESIUM
     Indication: GASTRIC PH DECREASED
     Dosage: 40.0MG UNKNOWN
     Route: 048
     Dates: start: 2000, end: 2015
  37. NEXIUM [Suspect]
     Active Substance: ESOMEPRAZOLE MAGNESIUM
     Indication: GASTROOESOPHAGEAL REFLUX DISEASE
     Dosage: 40.0MG UNKNOWN
     Route: 048
     Dates: start: 2000, end: 2015
  38. VIIBRYD [Concomitant]
     Active Substance: VILAZODONE HYDROCHLORIDE
     Route: 048
     Dates: start: 20160312
  39. CLONAZEPAM. [Concomitant]
     Active Substance: CLONAZEPAM
     Route: 048
     Dates: start: 20160214
  40. TYLENOL [Concomitant]
     Active Substance: ACETAMINOPHEN
     Indication: PAIN
  41. GABAPENTIN. [Concomitant]
     Active Substance: GABAPENTIN
     Route: 048
     Dates: start: 20160321
  42. BREO ELLIPTA [Concomitant]
     Active Substance: FLUTICASONE FUROATE\VILANTEROL TRIFENATATE
     Route: 048
     Dates: start: 20160321
  43. LONCASTUXIMAB TESIRINE. [Concomitant]
     Active Substance: LONCASTUXIMAB TESIRINE
     Route: 048
  44. AXANUM [Concomitant]
     Active Substance: ASPIRIN\ESOMEPRAZOLE MAGNESIUM
     Route: 048
  45. CYMBALTA [Concomitant]
     Active Substance: DULOXETINE HYDROCHLORIDE
     Route: 048
     Dates: start: 20051014
  46. TESTTOSTERONE CYPIONATE [Concomitant]
  47. NEXIUM [Suspect]
     Active Substance: ESOMEPRAZOLE MAGNESIUM
     Indication: GASTRIC PH DECREASED
     Dosage: UNKNOWN
     Route: 048
     Dates: start: 20050508, end: 20160210
  48. ZITHROMAX [Concomitant]
     Active Substance: AZITHROMYCIN DIHYDRATE
     Indication: BRONCHITIS
  49. ZYLOPRIM [Concomitant]
     Active Substance: ALLOPURINOL
     Route: 065
  50. VITAMIN D [Concomitant]
     Active Substance: VITAMIN D NOS
     Route: 065
  51. TESTOSTERONE. [Concomitant]
     Active Substance: TESTOSTERONE
     Route: 048
     Dates: start: 20160321
  52. BENZONATATE. [Concomitant]
     Active Substance: BENZONATATE
     Route: 048
     Dates: start: 20160321
  53. PROSCAR [Concomitant]
     Active Substance: FINASTERIDE
     Indication: PROSTATE INFECTION
     Route: 048
  54. CHLOROQUINE PHOSPHATE. [Concomitant]
     Active Substance: CHLOROQUINE PHOSPHATE
     Route: 048
  55. HYDROCODONE-ACETAMINOPHEN [Concomitant]
     Active Substance: ACETAMINOPHEN\HYDROCODONE
     Route: 048
  56. OXYBUTIN [Concomitant]
     Active Substance: OXYBUTYNIN
     Route: 048
  57. IPRATROPIUM [Concomitant]
     Active Substance: IPRATROPIUM
     Route: 048
  58. RESTASIS [Concomitant]
     Active Substance: CYCLOSPORINE
     Route: 048
  59. HYDROCORTISONE. [Concomitant]
     Active Substance: HYDROCORTISONE
     Route: 048
  60. KETOROLAC [Concomitant]
     Active Substance: KETOROLAC TROMETHAMINE
     Route: 065
  61. ACIPHEX [Concomitant]
     Active Substance: RABEPRAZOLE SODIUM
  62. LOSARTAN POTASSIUM. [Concomitant]
     Active Substance: LOSARTAN POTASSIUM
  63. LISINOPRIL. [Concomitant]
     Active Substance: LISINOPRIL
     Indication: BLOOD PRESSURE ABNORMAL
     Route: 048
     Dates: start: 20150517
  64. VIIBRYD [Concomitant]
     Active Substance: VILAZODONE HYDROCHLORIDE
     Route: 048
     Dates: start: 20160312
  65. TRAMADOL. [Concomitant]
     Active Substance: TRAMADOL
     Indication: PAIN
     Route: 048
     Dates: start: 20151102
  66. METHYLPREDNISOLONE. [Concomitant]
     Active Substance: METHYLPREDNISOLONE
     Route: 048
     Dates: start: 20151201
  67. OXYCODONE/ACETAMINOPHEN [Concomitant]
     Active Substance: ACETAMINOPHEN\OXYCODONE HYDROCHLORIDE
     Indication: PAIN
     Route: 048
     Dates: start: 20151106
  68. QUETIAPINE. [Concomitant]
     Active Substance: QUETIAPINE
     Route: 048
     Dates: start: 20160321
  69. PAROXETINE. [Concomitant]
     Active Substance: PAROXETINE
     Route: 048
     Dates: start: 20160321
  70. SYNTHROID [Concomitant]
     Active Substance: LEVOTHYROXINE SODIUM
     Indication: THYROID DISORDER
     Route: 048
  71. MOMETASONE [Concomitant]
     Active Substance: MOMETASONE
     Route: 048
  72. NEXIUM [Suspect]
     Active Substance: ESOMEPRAZOLE MAGNESIUM
     Indication: GASTROOESOPHAGEAL REFLUX DISEASE
     Dosage: 40.0MG UNKNOWN
     Route: 048
     Dates: start: 2006, end: 2016
  73. NEXIUM [Suspect]
     Active Substance: ESOMEPRAZOLE MAGNESIUM
     Indication: GASTRIC PH DECREASED
     Dosage: GENERIC40.0MG UNKNOWN
     Route: 048
  74. VIIBRYD [Concomitant]
     Active Substance: VILAZODONE HYDROCHLORIDE
     Route: 048
     Dates: start: 20160129
  75. LEXAPRO [Concomitant]
     Active Substance: ESCITALOPRAM OXALATE
  76. CLINDAMYCIN. [Concomitant]
     Active Substance: CLINDAMYCIN
     Route: 048
     Dates: start: 20160321
  77. MOVIPREP [Concomitant]
     Active Substance: ASCORBIC ACID\POLYETHYLENE GLYCOL 3350\POTASSIUM CHLORIDE\SODIUM ASCORBATE\SODIUM CHLORIDE\SODIUM SULFATE
     Route: 048
     Dates: start: 20160321
  78. AMOXICILLIN. [Concomitant]
     Active Substance: AMOXICILLIN
     Route: 048
     Dates: start: 20160321
  79. POTASSIUM CITRATE. [Concomitant]
     Active Substance: POTASSIUM CITRATE
     Route: 048
  80. ANASTROZOLE. [Concomitant]
     Active Substance: ANASTROZOLE
     Route: 048
  81. ZAFIRLUKAST. [Concomitant]
     Active Substance: ZAFIRLUKAST
     Route: 048
  82. PENICILLIN G [Concomitant]
     Active Substance: PENICILLIN G
     Route: 048
  83. HUMANA [Concomitant]
     Route: 065
  84. NEXIUM [Suspect]
     Active Substance: ESOMEPRAZOLE MAGNESIUM
     Indication: GASTROOESOPHAGEAL REFLUX DISEASE
     Dosage: UNKNOWN
     Route: 048
     Dates: start: 20050508, end: 20160210
  85. VIIBRYD [Concomitant]
     Active Substance: VILAZODONE HYDROCHLORIDE
     Route: 048
     Dates: start: 20160129
  86. CELEBREX [Concomitant]
     Active Substance: CELECOXIB
     Indication: BACK PAIN
     Route: 048
     Dates: start: 20141002
  87. ATIVAN [Concomitant]
     Active Substance: LORAZEPAM
     Dosage: 160-12.5 MG
     Route: 048
  88. ABILIFY [Concomitant]
     Active Substance: ARIPIPRAZOLE
     Route: 048
     Dates: start: 20160321
  89. XYZAL [Concomitant]
     Active Substance: LEVOCETIRIZINE DIHYDROCHLORIDE
     Route: 048
     Dates: start: 20160321
  90. TOBRAMYCIN. [Concomitant]
     Active Substance: TOBRAMYCIN
     Route: 048
     Dates: start: 20160321
  91. ROCEPHIN [Concomitant]
     Active Substance: CEFTRIAXONE SODIUM
     Route: 048
     Dates: start: 20160321
  92. NAB-PACLITAXEL [Concomitant]
     Active Substance: PACLITAXEL
     Route: 048
  93. SILVER SULFADIAZINE. [Concomitant]
     Active Substance: SILVER SULFADIAZINE
     Route: 048
  94. KETOPROFEN. [Concomitant]
     Active Substance: KETOPROFEN
     Route: 065
  95. SILDEC [Concomitant]
     Active Substance: BROMPHENIRAMINE MALEATE\PSEUDOEPHEDRINE HYDROCHLORIDE
     Route: 048

REACTIONS (11)
  - Anxiety [Unknown]
  - Mental disorder [Unknown]
  - End stage renal disease [Unknown]
  - Chronic kidney disease [Not Recovered/Not Resolved]
  - Renal impairment [Unknown]
  - Tubulointerstitial nephritis [Unknown]
  - Depression [Unknown]
  - Acute kidney injury [Unknown]
  - Gout [Unknown]
  - Panic attack [Unknown]
  - Renal failure [Unknown]

NARRATIVE: CASE EVENT DATE: 20060101
